FAERS Safety Report 6760267-1 (Version None)
Quarter: 2010Q2

REPORT INFORMATION
  Report Type: 
  Country: None (occurrence: None)
  Receive Date: 20100608
  Receipt Date: 20090910
  Transmission Date: 20101027
  Serious: No
  Sender: FDA-Public Use
  Company Number: US-BRISTOL-MYERS SQUIBB COMPANY-14755375

PATIENT
  Age: 32 Year
  Sex: Female

DRUGS (5)
  1. SUSTIVA [Suspect]
     Indication: PATHOGEN RESISTANCE
     Route: 048
     Dates: start: 19990901
  2. ATRIPLA [Suspect]
     Indication: PATHOGEN RESISTANCE
     Route: 048
     Dates: start: 20080501
  3. COMBIVIR [Suspect]
     Indication: PATHOGEN RESISTANCE
     Route: 048
     Dates: start: 20090901
  4. VIRACEPT [Suspect]
     Indication: PATHOGEN RESISTANCE
     Dosage: 1 DF = 750 UNITS NOT SPECIFIED
     Route: 048
     Dates: start: 19990901
  5. ISENTRESS [Suspect]
     Indication: PATHOGEN RESISTANCE
     Dosage: DF = 400 UNITS NOT SPECIFIED
     Route: 048
     Dates: start: 20080901

REACTIONS (1)
  - NEUTROPENIA [None]
